FAERS Safety Report 10694086 (Version 1)
Quarter: 2015Q1

REPORT INFORMATION
  Report Type: Spontaneous
  Country: None (occurrence: FR)
  Receive Date: 20150106
  Receipt Date: 20150106
  Transmission Date: 20150721
  Serious: Yes (Death, Hospitalization, Other)
  Sender: FDA-Public Use
  Company Number: FR-BRISTOL-MYERS SQUIBB COMPANY-BMS-2014-004154

PATIENT
  Age: 93 Year
  Sex: Female

DRUGS (11)
  1. LEVOTHYROX [Concomitant]
     Active Substance: LEVOTHYROXINE
  2. KALEORID [Concomitant]
     Active Substance: POTASSIUM CHLORIDE
  3. BISOPROLOL [Concomitant]
     Active Substance: BISOPROLOL
  4. COLCHIMAX                          /00728901/ [Suspect]
     Active Substance: COLCHICINE\DICYCLOMINE HYDROCHLORIDE
     Indication: PAIN IN EXTREMITY
     Dosage: UNK
     Route: 048
     Dates: start: 20141106, end: 20141108
  5. AMIODARONE [Concomitant]
     Active Substance: AMIODARONE
  6. COUMADINE [Suspect]
     Active Substance: WARFARIN SODIUM
     Indication: PRODUCT USED FOR UNKNOWN INDICATION
     Dosage: 2 MG, UNK
     Route: 048
  7. FUROSEMIDE. [Concomitant]
     Active Substance: FUROSEMIDE
  8. FLECTOR [Concomitant]
     Active Substance: DICLOFENAC EPOLAMINE
  9. RAMIPRIL. [Concomitant]
     Active Substance: RAMIPRIL
  10. ESIDREX [Concomitant]
     Active Substance: HYDROCHLOROTHIAZIDE
  11. DOLIPRANE [Concomitant]
     Active Substance: ACETAMINOPHEN

REACTIONS (6)
  - Acute kidney injury [Fatal]
  - Nausea [Unknown]
  - Cardiac failure [Unknown]
  - Vomiting [Not Recovered/Not Resolved]
  - International normalised ratio increased [Recovered/Resolved]
  - Seizure [Unknown]

NARRATIVE: CASE EVENT DATE: 20141113
